FAERS Safety Report 24540274 (Version 1)
Quarter: 2024Q4

REPORT INFORMATION
  Report Type: Report from Study
  Country: JP (occurrence: JP)
  Receive Date: 20241023
  Receipt Date: 20241023
  Transmission Date: 20250114
  Serious: Yes (Other)
  Sender: BRISTOL-MYERS SQUIBB COMPANY
  Company Number: JP-BRISTOL-MYERS SQUIBB COMPANY-2023-074054

PATIENT
  Age: 64 Year
  Sex: Male
  Weight: 61 kg

DRUGS (4)
  1. YERVOY [Suspect]
     Active Substance: IPILIMUMAB
     Indication: Non-small cell lung cancer recurrent
     Dosage: ????:4?
     Route: 041
     Dates: start: 20211214, end: 20211214
  2. YERVOY [Suspect]
     Active Substance: IPILIMUMAB
     Dosage: ????:4?
     Route: 041
     Dates: start: 20220421, end: 20220421
  3. OPDIVO [Suspect]
     Active Substance: NIVOLUMAB
     Indication: Non-small cell lung cancer recurrent
     Dates: start: 20211214, end: 20211214
  4. OPDIVO [Suspect]
     Active Substance: NIVOLUMAB
     Dates: start: 20220512, end: 20220512

REACTIONS (3)
  - Melaena [Recovered/Resolved]
  - Arthralgia [Recovered/Resolved]
  - Malaise [Recovered/Resolved]

NARRATIVE: CASE EVENT DATE: 20220520
